FAERS Safety Report 6887328 (Version 5)
Quarter: 2014Q2

REPORT INFORMATION
  Report Type: Spontaneous
  Country: US (occurrence: US)
  Receive Date: 20090121
  Receipt Date: 20140623
  Transmission Date: 20141212
  Serious: Yes (Death, Life-Threatening, Congenital Anomaly, Other)
  Sender: FDA-Public Use
  Company Number: US-ELI_LILLY_AND_COMPANY-US200901002618

PATIENT
  Age: 1 Month
  Sex: Female

DRUGS (2)
  1. PROZAC [Suspect]
     Indication: PRODUCT USED FOR UNKNOWN INDICATION
     Dosage: UNK, UNKNOWN
     Route: 064
  2. PROZAC [Suspect]
     Indication: PRODUCT USED FOR UNKNOWN INDICATION
     Dosage: UNK, UNKNOWN
     Route: 064

REACTIONS (26)
  - Death [Fatal]
  - Congenital diaphragmatic hernia [Unknown]
  - Neonatal respiratory distress syndrome [Unknown]
  - Lung disorder [Unknown]
  - Cardio-respiratory arrest neonatal [Unknown]
  - Staphylococcal sepsis [Unknown]
  - Arrhythmia [Unknown]
  - Haemorrhagic disorder [Unknown]
  - Coagulopathy [Unknown]
  - Poor peripheral circulation [Unknown]
  - Partial seizures [Unknown]
  - Dextrocardia [Unknown]
  - Persistent foetal circulation [Unknown]
  - Pulmonary hypoplasia [Unknown]
  - Ventricular hypoplasia [Unknown]
  - Patent ductus arteriosus [Unknown]
  - Foetal exposure during pregnancy [Unknown]
  - Abdominal mass [Unknown]
  - Dyskinesia [Unknown]
  - Oliguria [Unknown]
  - Bradycardia [Unknown]
  - Pain [Unknown]
  - Angiopathy [Unknown]
  - Venous injury [Unknown]
  - Thymus disorder [Unknown]
  - Gastrointestinal disorder [Unknown]
